FAERS Safety Report 15231418 (Version 1)
Quarter: 2018Q3

REPORT INFORMATION
  Report Type: Spontaneous
  Country: US (occurrence: US)
  Receive Date: 20180708
  Receipt Date: 20180708
  Transmission Date: 20181010
  Serious: Yes (Disabling)
  Sender: FDA-Public Use
  Company Number: None

PATIENT
  Age: 53 Year
  Sex: Female
  Weight: 54 kg

DRUGS (7)
  1. VITAMIN D3 [Concomitant]
     Active Substance: CHOLECALCIFEROL
  2. PROTEIN [Concomitant]
     Active Substance: PROTEIN
  3. FISH OIL [Concomitant]
     Active Substance: FISH OIL
  4. CALCIUM [Concomitant]
     Active Substance: CALCIUM
  5. ATIVAN [Suspect]
     Active Substance: LORAZEPAM
     Indication: ANXIETY
     Route: 042
     Dates: start: 20180213, end: 20180531
  6. MAGNESIUM [Concomitant]
     Active Substance: MAGNESIUM
  7. VITAMIN C [Concomitant]
     Active Substance: ASCORBIC ACID

REACTIONS (10)
  - Blood potassium decreased [None]
  - Nausea [None]
  - Impaired work ability [None]
  - Quality of life decreased [None]
  - Paraesthesia [None]
  - Palpitations [None]
  - Nightmare [None]
  - Nervous system disorder [None]
  - Panic attack [None]
  - Pain [None]

NARRATIVE: CASE EVENT DATE: 20180213
